FAERS Safety Report 6750125-0 (Version None)
Quarter: 2010Q2

REPORT INFORMATION
  Report Type: 
  Country: None (occurrence: None)
  Receive Date: 20100601
  Receipt Date: 20100527
  Transmission Date: 20101027
  Serious: Yes (Hospitalization)
  Sender: FDA-Public Use
  Company Number: SG-ROXANE LABORATORIES, INC.-2010-DE-02928GD

PATIENT
  Age: 55 Year
  Sex: Male

DRUGS (1)
  1. MORPHINE SULFATE [Suspect]

REACTIONS (6)
  - ACUTE GENERALISED EXANTHEMATOUS PUSTULOSIS [None]
  - C-REACTIVE PROTEIN INCREASED [None]
  - FACE OEDEMA [None]
  - LEUKOCYTOSIS [None]
  - NEUTROPHILIA [None]
  - PYREXIA [None]
